FAERS Safety Report 7956540-1 (Version None)
Quarter: 2011Q4

REPORT INFORMATION
  Report Type: 
  Country: None (occurrence: None)
  Receive Date: 20111205
  Receipt Date: 20111128
  Transmission Date: 20120403
  Serious: Yes (Other)
  Sender: FDA-Public Use
  Company Number: US-JNJFOC-20111112370

PATIENT
  Age: 79 Year
  Sex: Female
  Weight: 46.27 kg

DRUGS (6)
  1. ASPIRIN [Concomitant]
     Indication: CEREBROVASCULAR ACCIDENT PROPHYLAXIS
  2. PEPCID AC [Suspect]
     Route: 048
  3. ASPIRIN [Concomitant]
     Indication: ISCHAEMIC HEART DISEASE PROPHYLAXIS
  4. THYROID TAB [Concomitant]
     Indication: THYROID DISORDER
  5. PEPCID AC [Suspect]
     Indication: DYSPEPSIA
     Route: 048
     Dates: start: 20111126, end: 20111127
  6. SOTALOL HCL [Interacting]
     Indication: HEART RATE INCREASED

REACTIONS (4)
  - GAIT DISTURBANCE [None]
  - DRUG INTERACTION [None]
  - BLOOD PRESSURE INCREASED [None]
  - HEART RATE INCREASED [None]
